FAERS Safety Report 7306284-4 (Version None)
Quarter: 2011Q1

REPORT INFORMATION
  Report Type: 
  Country: None (occurrence: None)
  Receive Date: 20110222
  Receipt Date: 20110210
  Transmission Date: 20110831
  Serious: Yes (Other)
  Sender: FDA-Public Use
  Company Number: PHHY2011JP12081

PATIENT
  Age: 66 Year
  Sex: Female

DRUGS (2)
  1. TASIGNA [Suspect]
     Dosage: 800 MG, DAILY
     Route: 048
     Dates: start: 20110101
  2. DASATIMIB [Suspect]
     Dosage: 20 MG, DAILY
     Route: 048
     Dates: start: 20100401, end: 20110101

REACTIONS (1)
  - PLEURAL EFFUSION [None]
